FAERS Safety Report 4782830-X (Version None)
Quarter: 2005Q3

REPORT INFORMATION
  Report Type: 
  Country: None (occurrence: None)
  Receive Date: 20050914
  Receipt Date: 20050604
  Transmission Date: 20060218
  Serious: Yes (Death, Hospitalization)
  Sender: FDA-Public Use
  Company Number: 163-20785-05060105

PATIENT
  Age: 32 Year
  Sex: Male
  Weight: 74.5 kg

DRUGS (1)
  1. THALOMID [Suspect]
     Indication: HEPATIC NEOPLASM MALIGNANT
     Dosage: 200MG, QHS, TITRATE UPWARDS BY 200MG EVERY WEEK UNTIL 1000MG/DAY, ORAL
     Route: 048
     Dates: start: 20020402, end: 20020423

REACTIONS (4)
  - DEATH [None]
  - DISEASE PROGRESSION [None]
  - FATIGUE [None]
  - HEPATIC FAILURE [None]
